FAERS Safety Report 15648165 (Version 2)
Quarter: 2018Q4

REPORT INFORMATION
  Report Type: Report from Study
  Country: IT (occurrence: IT)
  Receive Date: 20181122
  Receipt Date: 20181129
  Transmission Date: 20190205
  Serious: Yes (Other)
  Sender: FDA-Public Use
  Company Number: IT-PFIZER INC-2018481423

PATIENT
  Age: 63 Year
  Sex: Female

DRUGS (1)
  1. VINCRISTINE SULFATE. [Suspect]
     Active Substance: VINCRISTINE SULFATE
     Indication: CERVIX CARCINOMA
     Dosage: RECEIVED FOR 6-8 WEEKS
     Route: 065

REACTIONS (1)
  - Anal incontinence [Recovering/Resolving]
